FAERS Safety Report 4622753-X (Version None)
Quarter: 2005Q1

REPORT INFORMATION
  Report Type: 
  Country: None (occurrence: None)
  Receive Date: 20050329
  Receipt Date: 20050329
  Transmission Date: 20050727
  Serious: Yes (Other)
  Sender: FDA-Public Use
  Company Number: None

PATIENT
  Age: 56 Year
  Sex: Male

DRUGS (1)
  1. GLYBURIDE [Suspect]
     Indication: DIABETES MELLITUS
     Dosage: TAKE 2 TABLETS TWICE A DAY

REACTIONS (1)
  - PHARMACEUTICAL PRODUCT COMPLAINT [None]
